FAERS Safety Report 12955592 (Version 1)
Quarter: 2016Q4

REPORT INFORMATION
  Report Type: Spontaneous
  Country: FR (occurrence: FR)
  Receive Date: 20161118
  Receipt Date: 20161118
  Transmission Date: 20170207
  Serious: Yes (Hospitalization)
  Sender: FDA-Public Use
  Company Number: FR-PFIZER INC-2016522821

PATIENT
  Age: 59 Year
  Sex: Female

DRUGS (9)
  1. SIMVASTATIN. [Concomitant]
     Active Substance: SIMVASTATIN
     Dosage: 20 MG, DAILY
  2. ACUPAN [Suspect]
     Active Substance: NEFOPAM HYDROCHLORIDE
     Dosage: UNK
     Route: 048
     Dates: end: 20161001
  3. LOGIMAX [Concomitant]
     Active Substance: FELODIPINE\METOPROLOL SUCCINATE
  4. XANAX [Suspect]
     Active Substance: ALPRAZOLAM
     Dosage: UNK
     Route: 048
     Dates: end: 20161001
  5. LEPTICUR [Concomitant]
     Active Substance: TROPATEPINE HYDROCHLORIDE
     Dosage: 10 MG, DAILY (ONCE)
  6. SULFARLEM [Concomitant]
     Active Substance: ANETHOLTRITHION
     Dosage: 25 MG, 3X/DAY
  7. XEROQUEL [Suspect]
     Active Substance: QUETIAPINE FUMARATE
     Dosage: 400 MG, 1X/DAY
     Route: 048
     Dates: start: 2012, end: 20161001
  8. BEVITINE [Concomitant]
     Active Substance: THIAMINE
     Indication: ANXIETY
     Dosage: UNK
     Dates: start: 20160922
  9. THERALENE [Suspect]
     Active Substance: TRIMEPRAZINE
     Dosage: 30 GTT, 1X/DAY (IN THE EVENING)
     Route: 048
     Dates: end: 20161001

REACTIONS (2)
  - Hypernatraemia [Unknown]
  - Encephalopathy [Recovered/Resolved]

NARRATIVE: CASE EVENT DATE: 20160930
